FAERS Safety Report 9988007 (Version 3)
Quarter: 2014Q2

REPORT INFORMATION
  Report Type: Report from Study
  Country: US (occurrence: US)
  Receive Date: 20140307
  Receipt Date: 20140411
  Transmission Date: 20141212
  Serious: Yes (Hospitalization)
  Sender: FDA-Public Use
  Company Number: US-ACTELION-A-US2014-95028

PATIENT
  Age: 56 Year
  Sex: Female

DRUGS (3)
  1. VELETRI [Suspect]
     Indication: PULMONARY ARTERIAL HYPERTENSION
     Dosage: 43 NG/KG, PER MIN
     Route: 042
     Dates: start: 20131016
  2. VELETRI [Suspect]
     Dosage: 44 NG/KG, PER MIN
     Route: 041
  3. REVATIO [Concomitant]

REACTIONS (8)
  - Pharyngeal injury [Recovering/Resolving]
  - Infection [Recovering/Resolving]
  - Dyspnoea [Recovering/Resolving]
  - Pericardial effusion [Recovering/Resolving]
  - Fluid overload [Recovering/Resolving]
  - Cardiac failure congestive [Recovering/Resolving]
  - Respiratory failure [Recovering/Resolving]
  - Stent placement [Recovering/Resolving]
